FAERS Safety Report 5090930-2 (Version None)
Quarter: 2006Q3

REPORT INFORMATION
  Report Type: 
  Country: None (occurrence: None)
  Receive Date: 20060823
  Receipt Date: 20060807
  Transmission Date: 20061208
  Serious: Yes (Other)
  Sender: FDA-Public Use
  Company Number: US200608002043

PATIENT
  Age: 39 Year
  Sex: Male
  Weight: 104.3 kg

DRUGS (5)
  1. ZYPREXA [Suspect]
     Dosage: SEE IMAGE
     Dates: start: 20010522, end: 20010601
  2. ZYPREXA [Suspect]
     Dosage: SEE IMAGE
     Dates: start: 20010601
  3. RISPERIDONE [Concomitant]
  4. PAROXETINE HCL [Concomitant]
  5. CARVEDILOL [Concomitant]

REACTIONS (10)
  - BLOOD CHOLESTEROL ABNORMAL [None]
  - BLOOD TRIGLYCERIDES INCREASED [None]
  - CARDIOVASCULAR DISORDER [None]
  - CEREBROVASCULAR DISORDER [None]
  - DIABETES MELLITUS [None]
  - HYPERTENSION [None]
  - METABOLIC DISORDER [None]
  - MYOCARDIAL ISCHAEMIA [None]
  - OBESITY [None]
  - VASCULAR OCCLUSION [None]
